FAERS Safety Report 13038012 (Version 1)
Quarter: 2016Q4

REPORT INFORMATION
  Report Type: Spontaneous
  Country: US (occurrence: US)
  Receive Date: 20161207
  Receipt Date: 20161207
  Transmission Date: 20170207
  Serious: No
  Sender: FDA-Public Use
  Company Number: None

PATIENT

DRUGS (2)
  1. TRAMADOL. [Suspect]
     Active Substance: TRAMADOL
  2. BUSPIRONE HCL [Suspect]
     Active Substance: BUSPIRONE HYDROCHLORIDE

REACTIONS (15)
  - Wrong drug administered [None]
  - Hyperhidrosis [None]
  - Decreased appetite [None]
  - Somnolence [None]
  - Pruritus [None]
  - Abdominal pain [None]
  - Blood pressure increased [None]
  - Headache [None]
  - Stress at work [None]
  - Abnormal faeces [None]
  - Fatigue [None]
  - Drug dispensed to wrong patient [None]
  - Bowel movement irregularity [None]
  - Anxiety [None]
  - Nausea [None]

NARRATIVE: CASE EVENT DATE: 2016
